FAERS Safety Report 6052248-0 (Version None)
Quarter: 2009Q1

REPORT INFORMATION
  Report Type: 
  Country: None (occurrence: None)
  Receive Date: 20090121
  Receipt Date: 20090113
  Transmission Date: 20090719
  Serious: Yes (Life-Threatening, Hospitalization)
  Sender: FDA-Public Use
  Company Number: GXKR2009DE00628

PATIENT
  Age: 41 Year
  Sex: Male
  Weight: 136 kg

DRUGS (5)
  1. BISOPROLOL FUMARATE [Suspect]
     Indication: HYPERTENSION
     Dosage: 5 MG, QD, ORAL
     Route: 048
     Dates: start: 20080320
  2. ACETYLSALICYLIC ACID (ACETYLSALICYLIC ACID) TABLET [Concomitant]
  3. ATACAND [Concomitant]
  4. PANTOZOL (PANTOPRAZOLE SODIUM) TABLET [Concomitant]
  5. UNIMAX ^ASTRAZENECA^ (FELODIPINE, RAMIPRIL) TABLET [Concomitant]

REACTIONS (1)
  - TACHYCARDIA [None]
